FAERS Safety Report 23687243 (Version 2)
Quarter: 2024Q2

REPORT INFORMATION
  Report Type: Spontaneous
  Country: CA (occurrence: CA)
  Receive Date: 20240329
  Receipt Date: 20240504
  Transmission Date: 20240716
  Serious: Yes (Other)
  Sender: FDA-Public Use
  Company Number: CA-GREER Laboratories, Inc.-2154990

PATIENT
  Age: 35 Year
  Sex: Female

DRUGS (11)
  1. MIXTURE OF FOUR STANDARDIZED GRASSES [Suspect]
     Active Substance: AGROSTIS GIGANTEA POLLEN\DACTYLIS GLOMERATA POLLEN\PHLEUM PRATENSE POLLEN\POA PRATENSIS POLLEN
     Indication: Rhinitis allergic
     Route: 058
     Dates: start: 20230713, end: 20231123
  2. SHORT AND GIANT RAGWEED POLLEN MIX [Suspect]
     Active Substance: AMBROSIA ARTEMISIIFOLIA POLLEN\AMBROSIA TRIFIDA POLLEN
     Route: 058
     Dates: start: 20230713, end: 20231123
  3. EPIPEN [Concomitant]
     Active Substance: EPINEPHRINE
  4. DEXILANT [Concomitant]
     Active Substance: DEXLANSOPRAZOLE
  5. REACTINE [Concomitant]
  6. STANDARDIZED CAT HAIR [Suspect]
     Active Substance: FELIS CATUS HAIR
     Route: 058
     Dates: start: 20230713, end: 20231123
  7. STANDARDIZED MITE MIX [Suspect]
     Active Substance: DERMATOPHAGOIDES FARINAE\DERMATOPHAGOIDES PTERONYSSINUS
     Route: 058
     Dates: start: 20230713, end: 20231123
  8. WHITE OAK POLLEN [Suspect]
     Active Substance: QUERCUS ALBA POLLEN
     Route: 058
     Dates: start: 20230713, end: 20231123
  9. SHAGBARK HICKORY POLLEN [Suspect]
     Active Substance: CARYA OVATA POLLEN
     Route: 058
     Dates: start: 20230713, end: 20231123
  10. RUSSIAN THISTLE POLLEN [Suspect]
     Active Substance: SALSOLA KALI POLLEN
     Route: 058
     Dates: start: 20230713, end: 20231123
  11. YELLOW CURLY DOCK POLLEN [Suspect]
     Active Substance: RUMEX CRISPUS POLLEN
     Route: 058
     Dates: start: 20230713, end: 20231123

REACTIONS (1)
  - Anaphylactic reaction [Recovered/Resolved]
